FAERS Safety Report 19380582 (Version 2)
Quarter: 2021Q2

REPORT INFORMATION
  Report Type: Report from Study
  Country: HU (occurrence: HU)
  Receive Date: 20210607
  Receipt Date: 20210615
  Transmission Date: 20210717
  Serious: Yes (Hospitalization)
  Sender: FDA-Public Use
  Company Number: HU-JNJFOC-20210555292

PATIENT
  Age: 58 Year
  Sex: Male
  Weight: 90 kg

DRUGS (11)
  1. DULOXETINE. [Concomitant]
     Active Substance: DULOXETINE
     Indication: DEPRESSION
     Route: 048
     Dates: start: 20170718
  2. KALDYUM [Concomitant]
     Active Substance: POTASSIUM CHLORIDE
     Indication: PROPHYLAXIS
     Route: 048
     Dates: start: 20201204, end: 20210525
  3. DEXAMETHASONE KRKA [Concomitant]
     Active Substance: DEXAMETHASONE
     Route: 048
     Dates: start: 20210526, end: 20210529
  4. NOOTROPIL [Concomitant]
     Active Substance: PIRACETAM
     Indication: TINNITUS
     Route: 048
     Dates: start: 20161017
  5. RIVOTRIL [Concomitant]
     Active Substance: CLONAZEPAM
     Indication: ANXIETY
     Route: 048
     Dates: start: 20170307
  6. VITAMIN D3 [Concomitant]
     Active Substance: CHOLECALCIFEROL
     Indication: RHEUMATOID ARTHRITIS
     Dosage: 3000 OTHER
     Route: 048
     Dates: start: 20190801
  7. ESKETAMINE [Suspect]
     Active Substance: ESKETAMINE
     Indication: DEPRESSION
     Dosage: DATE OF MOST RECENT DOSE: 19?MAY?2021
     Dates: start: 20180209
  8. AZITHROMYCIN ANHYDROUS. [Concomitant]
     Active Substance: AZITHROMYCIN ANHYDROUS
     Indication: PYREXIA
     Dates: start: 20210520
  9. BETAGEN [BETAMETHASONE] [Concomitant]
     Indication: TINNITUS
     Route: 048
     Dates: start: 20150429
  10. PANTOPRAZOL SANDOZ [Concomitant]
     Active Substance: PANTOPRAZOLE SODIUM
     Indication: PROPHYLAXIS
     Route: 048
     Dates: start: 20201204
  11. DEXAMETHASONE KRKA [Concomitant]
     Active Substance: DEXAMETHASONE
     Indication: NEUTROPENIA
     Route: 048
     Dates: start: 20210520, end: 20210525

REACTIONS (1)
  - Thrombocytopenia [Recovered/Resolved]

NARRATIVE: CASE EVENT DATE: 20210525
